FAERS Safety Report 24088261 (Version 1)
Quarter: 2024Q3

REPORT INFORMATION
  Report Type: Spontaneous
  Country: BG (occurrence: BG)
  Receive Date: 20240715
  Receipt Date: 20240715
  Transmission Date: 20241016
  Serious: Yes (Hospitalization, Other)
  Sender: AMGEN
  Company Number: BG-AMGEN-BGRSP2024134828

PATIENT
  Age: 55 Year
  Sex: Female
  Weight: 65 kg

DRUGS (3)
  1. PROLIA [Suspect]
     Active Substance: DENOSUMAB
     Indication: Osteoporosis
     Dosage: 60 MILLIGRAM, Q6MO
     Route: 058
  2. VITAMIN D [Concomitant]
     Active Substance: VITAMIN D NOS
     Indication: Osteoporosis
     Dosage: 3000 INTERNATIONAL UNIT
  3. MENAQUINONE 6 [Concomitant]
     Active Substance: MENAQUINONE 6
     Dosage: 75 MICROGRAM, QD

REACTIONS (23)
  - Polyarthritis [Unknown]
  - Thoracic vertebral fracture [Unknown]
  - Pathological fracture [Unknown]
  - Osteochondrosis [Unknown]
  - Parathyroid tumour benign [Unknown]
  - Intervertebral disc protrusion [Unknown]
  - Goitre [Unknown]
  - Osteolysis [Unknown]
  - Spondylolisthesis [Unknown]
  - Synovitis [Unknown]
  - Chondrocalcinosis [Unknown]
  - Blood alkaline phosphatase increased [Recovered/Resolved]
  - C-telopeptide increased [Unknown]
  - Exostosis [Unknown]
  - Spinal osteoarthritis [Unknown]
  - Osteosclerosis [Unknown]
  - Lymphadenopathy [Unknown]
  - Blood calcium increased [Unknown]
  - Onycholysis [Unknown]
  - Nail pigmentation [Unknown]
  - Nail disorder [Unknown]
  - Bone cyst [Unknown]
  - Skin hypertrophy [Unknown]
